FAERS Safety Report 11870089 (Version 1)
Quarter: 2015Q4

REPORT INFORMATION
  Report Type: Spontaneous
  Country: CA (occurrence: CA)
  Receive Date: 20151228
  Receipt Date: 20151228
  Transmission Date: 20160305
  Serious: Yes (Hospitalization, Other)
  Sender: FDA-Public Use
  Company Number: CA-TEVA-621134ACC

PATIENT
  Age: 17 Year
  Sex: Male
  Weight: 80 kg

DRUGS (4)
  1. METHOTREXATE INJECTION, USP [Suspect]
     Active Substance: METHOTREXATE
     Indication: LYMPHOCYTIC LEUKAEMIA
     Route: 037
  2. ONCASPAR [Concomitant]
     Active Substance: PEGASPARGASE
  3. VINCRISTINE SULFATE INJECTION USP [Concomitant]
     Active Substance: VINCRISTINE SULFATE
     Route: 042
  4. 6-MERCAPTOPURINE [Concomitant]
     Active Substance: MERCAPTOPURINE

REACTIONS (1)
  - Posterior reversible encephalopathy syndrome [Unknown]
